FAERS Safety Report 4921087-3 (Version None)
Quarter: 2006Q1

REPORT INFORMATION
  Report Type: 
  Country: None (occurrence: None)
  Receive Date: 20060223
  Receipt Date: 20060215
  Transmission Date: 20060701
  Serious: Yes (Hospitalization)
  Sender: FDA-Public Use
  Company Number: US-MERCK-0602USA04625

PATIENT
  Age: 43 Year
  Sex: Female
  Weight: 105 kg

DRUGS (10)
  1. VIOXX [Suspect]
     Indication: INTERVERTEBRAL DISC DEGENERATION
     Route: 048
     Dates: start: 20030101, end: 20040601
  2. LORTAB [Concomitant]
     Indication: PAIN
     Route: 065
  3. FUROSEMIDE [Concomitant]
     Indication: FLUID RETENTION
     Route: 065
  4. COZAAR [Concomitant]
     Indication: HYPERTENSION
     Route: 048
  5. VALIUM [Concomitant]
     Indication: ANXIETY
     Route: 065
  6. COREG [Concomitant]
     Indication: HYPERTENSION
     Route: 065
  7. INDOMETHACIN [Concomitant]
     Indication: PAIN
     Route: 065
  8. SPIRONOLACTONE [Concomitant]
     Indication: HYPERTENSION
     Route: 065
  9. ALBUTEROL [Concomitant]
     Indication: ASTHMA
     Route: 065
  10. ADVAIR DISKUS 100/50 [Concomitant]
     Indication: ASTHMA
     Route: 065

REACTIONS (7)
  - DYSPNOEA [None]
  - GASTRIC DISORDER [None]
  - GOUT [None]
  - HEART RATE IRREGULAR [None]
  - MYOCARDIAL INFARCTION [None]
  - OSTEOARTHRITIS [None]
  - OVERDOSE [None]
